FAERS Safety Report 25182474 (Version 1)
Quarter: 2025Q2

REPORT INFORMATION
  Report Type: Spontaneous
  Country: US (occurrence: US)
  Receive Date: 20250410
  Receipt Date: 20250410
  Transmission Date: 20250716
  Serious: No
  Sender: KINIKSA PHARMACEUTICALS
  Company Number: US-Kiniksa Pharmaceuticals Ltd.-2025KPU000462

PATIENT
  Age: 27 Year
  Sex: Female

DRUGS (1)
  1. ARCALYST [Suspect]
     Active Substance: RILONACEPT
     Indication: Pericarditis

REACTIONS (11)
  - Pericarditis [Recovered/Resolved]
  - Intentional dose omission [Not Recovered/Not Resolved]
  - Insurance issue [Unknown]
  - Depressed mood [Unknown]
  - Helplessness [Unknown]
  - Pain [Recovered/Resolved]
  - Product dose omission issue [Unknown]
  - Inability to afford medication [Unknown]
  - Pharyngitis streptococcal [Not Recovered/Not Resolved]
  - Neck pain [Unknown]
  - Arthralgia [Unknown]

NARRATIVE: CASE EVENT DATE: 20250211
